FAERS Safety Report 6241462-7 (Version None)
Quarter: 2009Q2

REPORT INFORMATION
  Report Type: 
  Country: None (occurrence: None)
  Receive Date: 20090623
  Receipt Date: 20030513
  Transmission Date: 20091009
  Serious: Yes (Hospitalization, Other)
  Sender: FDA-Public Use
  Company Number: SE-ROCHE-337291

PATIENT
  Sex: Male
  Weight: 90 kg

DRUGS (45)
  1. DACLIZUMAB [Suspect]
     Route: 042
     Dates: start: 20030429, end: 20030429
  2. DACLIZUMAB [Suspect]
     Route: 042
     Dates: start: 20030513, end: 20030624
  3. MYCOPHENOLATE MOFETIL [Suspect]
     Route: 048
     Dates: start: 20030429
  4. MYCOPHENOLATE MOFETIL [Suspect]
     Route: 048
     Dates: start: 20030830
  5. MYCOPHENOLATE MOFETIL [Suspect]
     Route: 048
     Dates: start: 20030910
  6. MYCOPHENOLATE MOFETIL [Suspect]
     Route: 048
     Dates: start: 20040107
  7. TACROLIMUS [Suspect]
     Route: 048
     Dates: start: 20030430
  8. TACROLIMUS [Suspect]
     Route: 048
     Dates: start: 20030502
  9. TACROLIMUS [Suspect]
     Route: 048
     Dates: start: 20030630
  10. TACROLIMUS [Suspect]
     Route: 048
     Dates: start: 20030711
  11. TACROLIMUS [Suspect]
     Route: 048
     Dates: start: 20030804
  12. TACROLIMUS [Suspect]
     Route: 048
     Dates: start: 20030910
  13. TACROLIMUS [Suspect]
     Route: 048
     Dates: start: 20040421
  14. TACROLIMUS [Suspect]
     Route: 048
     Dates: start: 20050310
  15. PREDNISOLONE [Suspect]
     Route: 048
     Dates: start: 20030430
  16. PREDNISOLONE [Suspect]
     Route: 048
     Dates: start: 20030610
  17. PREDNISOLONE [Suspect]
     Route: 048
     Dates: start: 20030806
  18. PREDNISOLONE [Suspect]
     Route: 048
     Dates: start: 20030919
  19. PREDNISOLONE [Suspect]
     Route: 048
     Dates: start: 20040722
  20. PREDNISOLONE [Suspect]
     Route: 048
     Dates: start: 20040902, end: 20041201
  21. PREDNISOLONE [Suspect]
     Route: 042
     Dates: start: 20030429, end: 20030429
  22. ACETYLSALICYLIC ACID [Concomitant]
     Route: 048
     Dates: start: 20030517
  23. BUMETANID [Concomitant]
     Route: 048
     Dates: start: 20030707
  24. DOXAZOSIN MESYLATE [Concomitant]
     Route: 048
     Dates: start: 20030516
  25. DOXAZOSIN MESYLATE [Concomitant]
     Route: 048
     Dates: start: 20030729
  26. FELODIPINE [Concomitant]
     Route: 048
     Dates: start: 20030505
  27. FELODIPINE [Concomitant]
     Route: 048
     Dates: start: 20030630
  28. FELODIPINE [Concomitant]
     Route: 048
     Dates: start: 20030718, end: 20030729
  29. FELODIPINE [Concomitant]
     Route: 048
     Dates: start: 20031230
  30. FELODIPINE [Concomitant]
     Route: 048
     Dates: start: 20040103
  31. FELODIPINE [Concomitant]
     Route: 048
     Dates: start: 20050207
  32. FRUSEMID [Concomitant]
     Route: 042
     Dates: start: 20030430
  33. METOPROLOL SUCCINATE [Concomitant]
     Route: 048
     Dates: start: 20030504
  34. CEFADROXIL [Concomitant]
     Route: 048
     Dates: start: 20030516, end: 20030523
  35. FLOXACILLIN SODIUM [Concomitant]
     Route: 048
     Dates: start: 20030630
  36. FLOXACILLIN SODIUM [Concomitant]
     Route: 048
     Dates: end: 20030821
  37. GANCICLOVIR [Concomitant]
     Route: 048
     Dates: start: 20030505, end: 20030805
  38. METRONIDAZOLE [Concomitant]
     Route: 048
     Dates: start: 20030514, end: 20030526
  39. NORFLOXACIN [Concomitant]
     Route: 048
     Dates: start: 20030604, end: 20030611
  40. PENTAMIDIN [Concomitant]
     Dosage: ROUTE: IH
     Route: 050
     Dates: start: 20030513
  41. PENTAMIDIN [Concomitant]
     Route: 050
     Dates: start: 20030610
  42. PENTAMIDIN [Concomitant]
     Route: 050
     Dates: start: 20030813
  43. PENTAMIDIN [Concomitant]
     Route: 050
     Dates: start: 20030919
  44. PENTAMIDIN [Concomitant]
     Route: 050
     Dates: start: 20031030
  45. POTASSIUM CHLORIDE [Concomitant]
     Dosage: DRUG: POTASSIUMCLORID
     Route: 048
     Dates: start: 20030718, end: 20040722

REACTIONS (5)
  - COLITIS [None]
  - HYPERPARATHYROIDISM [None]
  - LARGE INTESTINE PERFORATION [None]
  - POST PROCEDURAL HAEMORRHAGE [None]
  - VENOUS STENOSIS [None]
